FAERS Safety Report 5762956-4 (Version None)
Quarter: 2008Q2

REPORT INFORMATION
  Report Type: 
  Country: None (occurrence: None)
  Receive Date: 20080609
  Receipt Date: 20080527
  Transmission Date: 20081010
  Serious: Yes (Hospitalization)
  Sender: FDA-Public Use
  Company Number: DE-ROCHE-567019

PATIENT
  Age: 77 Year
  Sex: Female
  Weight: 56.6 kg

DRUGS (5)
  1. CAPECITABINE [Suspect]
     Indication: BREAST CANCER
     Route: 048
     Dates: start: 20080417, end: 20080501
  2. CAPECITABINE [Suspect]
     Route: 048
     Dates: start: 20080508, end: 20080521
  3. SOTALOL HCL [Concomitant]
     Route: 048
     Dates: start: 20020101
  4. NOVAMIN [Concomitant]
     Indication: PAIN
     Dosage: DOSAGE REGIMEN: 30 DROPS TAKEN AS NEEDED.
     Route: 048
     Dates: start: 20080501
  5. NOVAMIN [Concomitant]
     Dosage: DOSAGE REGIMEN: 30 DROPS TAKEN AS NEEDED.
     Route: 048
     Dates: start: 20080501

REACTIONS (1)
  - ARTERIAL OCCLUSIVE DISEASE [None]
